FAERS Safety Report 6001997-9 (Version None)
Quarter: 2008Q4

REPORT INFORMATION
  Report Type: 
  Country: None (occurrence: None)
  Receive Date: 20081212
  Receipt Date: 20081130
  Transmission Date: 20090506
  Serious: Yes (Hospitalization)
  Sender: FDA-Public Use
  Company Number: KV200800717

PATIENT
  Age: 57 Year
  Sex: Male
  Weight: 102.5 kg

DRUGS (2)
  1. ISOSORBIDE MONONITRATE [Suspect]
     Indication: VENTRICULAR ARRHYTHMIA
     Dosage: 30MG, BID; ORAL
     Route: 048
     Dates: start: 20010101
  2. UNSPECIFIED BLOOD PRESSURE MEDICATION [Concomitant]

REACTIONS (7)
  - ARRHYTHMIA [None]
  - CEREBROVASCULAR ACCIDENT [None]
  - CHEST DISCOMFORT [None]
  - CONDITION AGGRAVATED [None]
  - DEVICE FAILURE [None]
  - MYOCARDIAL INFARCTION [None]
  - PRODUCT QUALITY ISSUE [None]
